FAERS Safety Report 25378933 (Version 1)
Quarter: 2025Q2

REPORT INFORMATION
  Report Type: Spontaneous
  Country: JP (occurrence: JP)
  Receive Date: 20250530
  Receipt Date: 20250530
  Transmission Date: 20250717
  Serious: Yes (Other)
  Sender: ASTELLAS
  Company Number: JP-ASTELLAS-2025-AER-028898

PATIENT
  Sex: Male

DRUGS (4)
  1. XTANDI [Suspect]
     Active Substance: ENZALUTAMIDE
     Indication: Neoplasm malignant
     Dosage: 4 TABLETS OF 40 MG AFTER BREAKFAST
     Route: 048
     Dates: start: 20250507, end: 20250525
  2. XTANDI [Suspect]
     Active Substance: ENZALUTAMIDE
     Indication: Metastases to bone
  3. LEUPLIN [Concomitant]
     Active Substance: LEUPROLIDE ACETATE
     Indication: Neoplasm malignant
     Route: 065
     Dates: start: 202404
  4. BICALUTAMIDE [Concomitant]
     Active Substance: BICALUTAMIDE
     Indication: Product used for unknown indication
     Route: 048
     Dates: end: 202505

REACTIONS (13)
  - Urinary retention [Unknown]
  - Micturition urgency [Unknown]
  - Dysarthria [Unknown]
  - Urethral pain [Unknown]
  - Abdominal pain lower [Unknown]
  - Insomnia [Unknown]
  - Dizziness [Unknown]
  - Dizziness [Unknown]
  - Nausea [Unknown]
  - Hypoaesthesia [Unknown]
  - Limb discomfort [Unknown]
  - Pollakiuria [Unknown]
  - Nocturia [Unknown]

NARRATIVE: CASE EVENT DATE: 20250508
